FAERS Safety Report 6868482-3 (Version None)
Quarter: 2010Q3

REPORT INFORMATION
  Report Type: 
  Country: None (occurrence: None)
  Receive Date: 20100722
  Receipt Date: 20100715
  Transmission Date: 20110219
  Serious: Yes (Hospitalization)
  Sender: FDA-Public Use
  Company Number: US-AMGEN-KDL421690

PATIENT
  Sex: Female
  Weight: 61.3 kg

DRUGS (7)
  1. ENBREL [Suspect]
     Indication: RHEUMATOID ARTHRITIS
     Route: 058
     Dates: start: 20000101, end: 20090101
  2. ENBREL [Suspect]
     Indication: PSORIASIS
  3. PREDNISONE [Suspect]
     Dates: start: 19910101
  4. NEXIUM [Concomitant]
     Dates: start: 19910101
  5. LUNESTA [Concomitant]
     Dates: start: 19910101
  6. ENALAPRIL MALEATE [Concomitant]
     Dates: start: 19910101
  7. DARVOCET-N 100 [Concomitant]
     Dates: start: 20100101

REACTIONS (4)
  - FALL [None]
  - HIP FRACTURE [None]
  - OSTEOARTHRITIS [None]
  - RHEUMATOID ARTHRITIS [None]
